FAERS Safety Report 8236824-2 (Version None)
Quarter: 2012Q1

REPORT INFORMATION
  Report Type: 
  Country: None (occurrence: None)
  Receive Date: 20120327
  Receipt Date: 20120323
  Transmission Date: 20120608
  Serious: Yes (Other)
  Sender: FDA-Public Use
  Company Number: GB-PFIZER INC-2012075464

PATIENT
  Age: 46 Year
  Sex: Female
  Weight: 79 kg

DRUGS (5)
  1. AQUEOUS CREAM [Concomitant]
     Dosage: UNK
     Dates: start: 20111117, end: 20111215
  2. CLOBETASOL PROPIONATE [Concomitant]
     Dosage: UNK
     Dates: start: 20111117
  3. FLUCLOXACILLIN [Concomitant]
     Dosage: UNK
     Dates: start: 20120314
  4. VARENICLINE TARTRATE [Suspect]
     Dosage: UNK
     Route: 048
     Dates: start: 20120217, end: 20120301
  5. CETIRIZINE [Concomitant]
     Dosage: UNK
     Dates: start: 20120314

REACTIONS (2)
  - TOXIC SKIN ERUPTION [None]
  - PSORIASIS [None]
